FAERS Safety Report 4296845-1 (Version None)
Quarter: 2004Q1

REPORT INFORMATION
  Report Type: 
  Country: None (occurrence: None)
  Receive Date: 20040126
  Receipt Date: 20031015
  Transmission Date: 20041129
  Serious: No
  Sender: FDA-Public Use
  Company Number: USA030640389

PATIENT
  Age: 37 Year
  Sex: Female

DRUGS (2)
  1. STRATTERA [Suspect]
     Dosage: 25 MG/DAY
     Dates: start: 20030601
  2. EFFEXOR [Concomitant]

REACTIONS (3)
  - CONFUSIONAL STATE [None]
  - EUPHORIC MOOD [None]
  - SOMNOLENCE [None]
